FAERS Safety Report 11815940 (Version 1)
Quarter: 2015Q4

REPORT INFORMATION
  Report Type: Spontaneous
  Country: FR (occurrence: FR)
  Receive Date: 20151209
  Receipt Date: 20151209
  Transmission Date: 20160305
  Serious: Yes (Death)
  Sender: FDA-Public Use
  Company Number: FR-SA-2015SA206773

PATIENT
  Age: 48 Year
  Sex: Male

DRUGS (5)
  1. LASILIX [Suspect]
     Active Substance: FUROSEMIDE
     Indication: OEDEMA PERIPHERAL
     Route: 048
     Dates: start: 20151104, end: 20151106
  2. METHOTREXATE [Suspect]
     Active Substance: METHOTREXATE
     Route: 042
     Dates: start: 20151104, end: 20151104
  3. EPREX [Suspect]
     Active Substance: ERYTHROPOIETIN
     Indication: ANAEMIA PROPHYLAXIS
     Dosage: DOSE:40000 UNIT(S)
     Route: 058
     Dates: start: 20151104, end: 20151106
  4. LEVOFLOXACIN. [Suspect]
     Active Substance: LEVOFLOXACIN
     Route: 048
     Dates: start: 20151031, end: 20151106
  5. METHOTREXATE [Suspect]
     Active Substance: METHOTREXATE
     Dates: start: 201510

REACTIONS (3)
  - Cardiac failure [Fatal]
  - Renal failure [Fatal]
  - Pancytopenia [Fatal]

NARRATIVE: CASE EVENT DATE: 20151110
